FAERS Safety Report 16659496 (Version 1)
Quarter: 2019Q3

REPORT INFORMATION
  Report Type: Spontaneous
  Country: US (occurrence: US)
  Receive Date: 20190802
  Receipt Date: 20190802
  Transmission Date: 20191004
  Serious: No
  Sender: FDA-Public Use
  Company Number: US-GLAXOSMITHKLINE-US2019AMR136153

PATIENT
  Age: 66 Year
  Sex: Female

DRUGS (1)
  1. ALBUTEROL SULFATE INHALATION POWDER [Suspect]
     Active Substance: ALBUTEROL SULFATE
     Indication: ASTHMA
     Dosage: UNK
     Route: 065

REACTIONS (6)
  - Asthma [Unknown]
  - Wrong technique in product usage process [Unknown]
  - Underdose [Unknown]
  - Wrong technique in device usage process [Unknown]
  - Condition aggravated [Unknown]
  - Product storage error [Unknown]
